FAERS Safety Report 14082331 (Version 1)
Quarter: 2017Q4

REPORT INFORMATION
  Report Type: Spontaneous
  Country: DE (occurrence: DE)
  Receive Date: 20171013
  Receipt Date: 20171013
  Transmission Date: 20180321
  Serious: Yes (Other)
  Sender: FDA-Public Use
  Company Number: DE-TEVA-813663GER

PATIENT
  Age: 68 Year
  Sex: Male

DRUGS (3)
  1. BACLOFEN-RATIOPHARM 10 MG TABLETTEN [Suspect]
     Active Substance: BACLOFEN
     Route: 048
     Dates: start: 201709
  2. BACLOFEN-RATIOPHARM 10 MG TABLETTEN [Suspect]
     Active Substance: BACLOFEN
     Indication: PELVIC PAIN
     Route: 048
     Dates: end: 201709
  3. PANTOPRAZOLE [Concomitant]
     Active Substance: PANTOPRAZOLE
     Indication: ABDOMINAL DISCOMFORT

REACTIONS (3)
  - Hyperchlorhydria [Not Recovered/Not Resolved]
  - Dysphonia [Not Recovered/Not Resolved]
  - Apnoea [Not Recovered/Not Resolved]

NARRATIVE: CASE EVENT DATE: 201709
